FAERS Safety Report 6854173-1 (Version None)
Quarter: 2010Q3

REPORT INFORMATION
  Report Type: 
  Country: None (occurrence: None)
  Receive Date: 20100717
  Receipt Date: 20080108
  Transmission Date: 20110219
  Serious: No
  Sender: FDA-Public Use
  Company Number: US-PFIZER INC-2008000219

PATIENT
  Sex: Female
  Weight: 75 kg

DRUGS (5)
  1. CHANTIX [Suspect]
     Indication: SMOKING CESSATION THERAPY
     Route: 048
     Dates: start: 20071101
  2. ATACAND HCT [Concomitant]
  3. PROTONIX [Concomitant]
     Indication: BLADDER DISORDER
  4. LIPITOR [Concomitant]
  5. CARDURA [Concomitant]

REACTIONS (1)
  - NAUSEA [None]
